FAERS Safety Report 13058117 (Version 1)
Quarter: 2016Q4

REPORT INFORMATION
  Report Type: Other
  Country: GB (occurrence: GB)
  Receive Date: 20161223
  Receipt Date: 20161223
  Transmission Date: 20170207
  Serious: Yes (Other)
  Sender: FDA-Public Use
  Company Number: GB-LUPIN PHARMACEUTICALS INC.-E2B_00006906

PATIENT
  Age: 79 Year
  Sex: Female
  Weight: 64 kg

DRUGS (1)
  1. SIMVASTATIN. [Suspect]
     Active Substance: SIMVASTATIN
     Indication: PRODUCT USED FOR UNKNOWN INDICATION
     Route: 065
     Dates: start: 20151221

REACTIONS (2)
  - Abnormal loss of weight [Recovering/Resolving]
  - Mobility decreased [Recovering/Resolving]

NARRATIVE: CASE EVENT DATE: 20161129
